FAERS Safety Report 18969459 (Version 2)
Quarter: 2023Q1

REPORT INFORMATION
  Report Type: Report from Study
  Country: US (occurrence: US)
  Receive Date: 20210304
  Receipt Date: 20230310
  Transmission Date: 20230417
  Serious: No
  Sender: FDA-Public Use
  Company Number: US-TAKEDA-2021TUS012105

PATIENT
  Age: 20 Year
  Sex: Male
  Weight: 91 kg

DRUGS (18)
  1. HUMAN IMMUNOGLOBULIN G [Suspect]
     Active Substance: HUMAN IMMUNOGLOBULIN G
     Indication: Immunodeficiency common variable
     Dosage: 45 GRAM, Q4WEEKS
     Route: 042
     Dates: start: 20051114
  2. HUMAN IMMUNOGLOBULIN G [Suspect]
     Active Substance: HUMAN IMMUNOGLOBULIN G
     Indication: Immunodeficiency common variable
     Dosage: 45 GRAM, Q4WEEKS
     Route: 042
     Dates: start: 20051114
  3. HUMAN IMMUNOGLOBULIN G [Suspect]
     Active Substance: HUMAN IMMUNOGLOBULIN G
     Dosage: 45 GRAM, Q4WEEKS
     Route: 042
     Dates: start: 20060918
  4. HUMAN IMMUNOGLOBULIN G [Suspect]
     Active Substance: HUMAN IMMUNOGLOBULIN G
     Dosage: 45 GRAM, Q4WEEKS
     Route: 042
     Dates: start: 20060918
  5. ACETAMINOPHEN [Concomitant]
     Active Substance: ACETAMINOPHEN
  6. DIPHENHYDRAMINE [Concomitant]
     Active Substance: DIPHENHYDRAMINE
  7. SODIUM CHLORIDE [Concomitant]
     Active Substance: SODIUM CHLORIDE
  8. EPINEPHRINE ASCORBATE [Concomitant]
  9. FLONASE [Concomitant]
     Active Substance: FLUTICASONE PROPIONATE
  10. FLUTICASONE [Concomitant]
     Active Substance: FLUTICASONE
  11. PROPIONATE SODIUM [Concomitant]
  12. PROAIR HFA [Concomitant]
     Active Substance: ALBUTEROL SULFATE
  13. ZYRTEC [Concomitant]
     Active Substance: CETIRIZINE HYDROCHLORIDE
  14. ALEVE EASY OPEN ARTHRITIS CAP [Concomitant]
     Active Substance: NAPROXEN SODIUM
  15. FLOVENT [Concomitant]
     Active Substance: FLUTICASONE PROPIONATE
  16. PROAIR HFA [Concomitant]
     Active Substance: ALBUTEROL SULFATE
  17. FLUTICASONE PROPIONATE [Concomitant]
     Active Substance: FLUTICASONE PROPIONATE
  18. ALEVE [Concomitant]
     Active Substance: NAPROXEN SODIUM

REACTIONS (3)
  - Productive cough [Unknown]
  - Lethargy [Unknown]
  - Product dose omission issue [Unknown]

NARRATIVE: CASE EVENT DATE: 20230227
